FAERS Safety Report 15906576 (Version 1)
Quarter: 2019Q1

REPORT INFORMATION
  Report Type: Spontaneous
  Country: US (occurrence: US)
  Receive Date: 20190204
  Receipt Date: 20190204
  Transmission Date: 20190417
  Serious: No
  Sender: FDA-Public Use
  Company Number: US-SA-2019SA027039

PATIENT
  Sex: Female

DRUGS (1)
  1. AUBAGIO [Suspect]
     Active Substance: TERIFLUNOMIDE
     Indication: MULTIPLE SCLEROSIS
     Dosage: 14 MG, QD
     Route: 048
     Dates: start: 20131112

REACTIONS (7)
  - Tongue disorder [Unknown]
  - Vertigo positional [Unknown]
  - Memory impairment [Unknown]
  - Photosensitivity reaction [Unknown]
  - Headache [Unknown]
  - Vision blurred [Unknown]
  - Limb discomfort [Unknown]
